FAERS Safety Report 8144054-8 (Version None)
Quarter: 2012Q1

REPORT INFORMATION
  Report Type: 
  Country: None (occurrence: None)
  Receive Date: 20120217
  Receipt Date: 20120217
  Transmission Date: 20120608
  Serious: Yes (Other)
  Sender: FDA-Public Use
  Company Number: None

PATIENT
  Age: 45 Year
  Sex: Female
  Weight: 72.574 kg

DRUGS (1)
  1. ULTRAM [Suspect]
     Indication: ARTHRALGIA
     Route: 048
     Dates: start: 20110314, end: 20120201

REACTIONS (2)
  - PHOTOPHOBIA [None]
  - NIGHT BLINDNESS [None]
